FAERS Safety Report 12419247 (Version 1)
Quarter: 2016Q2

REPORT INFORMATION
  Report Type: Spontaneous
  Country: US (occurrence: None)
  Receive Date: 20160527
  Receipt Date: 20160527
  Transmission Date: 20160815
  Serious: Yes (Hospitalization)
  Sender: FDA-Public Use
  Company Number: None

PATIENT
  Age: 30 Year
  Sex: Female
  Weight: 63.05 kg

DRUGS (4)
  1. NEURONTIN [Concomitant]
     Active Substance: GABAPENTIN
  2. ATIVAN [Concomitant]
     Active Substance: LORAZEPAM
  3. SUBOXONE [Suspect]
     Active Substance: BUPRENORPHINE HYDROCHLORIDE\NALOXONE HYDROCHLORIDE
     Indication: DRUG DEPENDENCE
     Dosage: 8 STRIPS THREE TIMES A DAY TAKEN UNDER THE TONGUE
     Dates: start: 20150101, end: 20160315
  4. CELEXA [Suspect]
     Active Substance: CITALOPRAM HYDROBROMIDE

REACTIONS (4)
  - Emotional poverty [None]
  - Depressed mood [None]
  - Suicidal behaviour [None]
  - Anhedonia [None]

NARRATIVE: CASE EVENT DATE: 20160511
